FAERS Safety Report 12059785 (Version 2)
Quarter: 2016Q1

REPORT INFORMATION
  Report Type: Spontaneous
  Country: SI (occurrence: SI)
  Receive Date: 20160210
  Receipt Date: 20160219
  Transmission Date: 20160526
  Serious: Yes (Hospitalization, Other)
  Sender: FDA-Public Use
  Company Number: SI-PFIZER INC-2016072026

PATIENT
  Age: 17 Year
  Sex: Female

DRUGS (1)
  1. ZOLOFT [Suspect]
     Active Substance: SERTRALINE HYDROCHLORIDE
     Indication: DEPRESSION
     Dosage: 100 MG, DAILY

REACTIONS (3)
  - Multiple fractures [Unknown]
  - Product use issue [Unknown]
  - Suicide attempt [Unknown]
